FAERS Safety Report 20482507 (Version 1)
Quarter: 2022Q1

REPORT INFORMATION
  Report Type: Spontaneous
  Country: US (occurrence: US)
  Receive Date: 20220217
  Receipt Date: 20220217
  Transmission Date: 20220423
  Serious: Yes (Hospitalization, Other)
  Sender: FDA-Public Use
  Company Number: US-ALEMBIC PHARMACUETICALS LIMITED-2022SCAL000030

PATIENT

DRUGS (1)
  1. DOXYCYCLINE [Suspect]
     Active Substance: DOXYCYCLINE
     Indication: Product used for unknown indication
     Dosage: UNK
     Route: 065

REACTIONS (6)
  - Acquired haemophilia [Recovering/Resolving]
  - Haematoma [Recovering/Resolving]
  - Contusion [Recovering/Resolving]
  - Anaemia [Recovering/Resolving]
  - Coagulopathy [Recovering/Resolving]
  - Activated partial thromboplastin time prolonged [Recovering/Resolving]
